FAERS Safety Report 17960353 (Version 2)
Quarter: 2020Q3

REPORT INFORMATION
  Report Type: Report from Study
  Country: MX (occurrence: MX)
  Receive Date: 20200630
  Receipt Date: 20200918
  Transmission Date: 20201103
  Serious: Yes (Death, Other)
  Sender: FDA-Public Use
  Company Number: MX-ADVANZ PHARMA-202006006719

PATIENT

DRUGS (2)
  1. HYDROXYCHLOROQUINE [Suspect]
     Active Substance: HYDROXYCHLOROQUINE
     Indication: COVID-19
     Dosage: 200 MG, BID (Q12H)
     Route: 048
     Dates: start: 20200512, end: 20200516
  2. HYDROXYCHLOROQUINE [Suspect]
     Active Substance: HYDROXYCHLOROQUINE
     Indication: PRODUCT USE IN UNAPPROVED INDICATION

REACTIONS (6)
  - Hypoxia [Unknown]
  - Post viral fatigue syndrome [Unknown]
  - Respiratory disorder [Fatal]
  - Off label use [Unknown]
  - Hypoventilation [Unknown]
  - Electrocardiogram QT interval abnormal [Unknown]

NARRATIVE: CASE EVENT DATE: 202005
